FAERS Safety Report 10041684 (Version 3)
Quarter: 2014Q2

REPORT INFORMATION
  Report Type: Report from Study
  Country: BR (occurrence: BR)
  Receive Date: 20140327
  Receipt Date: 20140505
  Transmission Date: 20141212
  Serious: Yes (Death, Hospitalization)
  Sender: FDA-Public Use
  Company Number: BR-ACTELION-A-CH2013-88202

PATIENT
  Age: 33 Year
  Sex: Female

DRUGS (7)
  1. TRACLEER [Suspect]
     Indication: PULMONARY ARTERIAL HYPERTENSION
     Dosage: 125 MG, BID
     Route: 048
     Dates: start: 200907, end: 20140217
  2. TRACLEER [Suspect]
     Dosage: 62.5 MG, BID
     Route: 048
     Dates: start: 200906, end: 200907
  3. WARFARIN [Concomitant]
  4. FUROSEMIDE [Concomitant]
  5. RIOCIGUAT [Concomitant]
  6. SPIRONOLACTONE [Concomitant]
  7. POTASSIUM CHLORIDE [Concomitant]

REACTIONS (7)
  - Cardiac failure [Fatal]
  - Renal failure [Fatal]
  - Condition aggravated [Fatal]
  - Ascites [Fatal]
  - Cough [Fatal]
  - Pulmonary arterial hypertension [Fatal]
  - Disease progression [Fatal]
